FAERS Safety Report 10278707 (Version 1)
Quarter: 2014Q3

REPORT INFORMATION
  Report Type: Spontaneous
  Country: US (occurrence: US)
  Receive Date: 20140704
  Receipt Date: 20140704
  Transmission Date: 20150326
  Serious: Yes (Other)
  Sender: FDA-Public Use
  Company Number: US-BRISTOL-MYERS SQUIBB COMPANY-21095583

PATIENT
  Sex: Male

DRUGS (5)
  1. ATENOLOL+HCTZ [Concomitant]
  2. REGLAN [Concomitant]
     Active Substance: METOCLOPRAMIDE HYDROCHLORIDE
  3. POTASSIUM SUPPLEMENTS [Concomitant]
  4. ERBITUX [Suspect]
     Active Substance: CETUXIMAB
     Indication: SQUAMOUS CELL CARCINOMA OF HEAD AND NECK
     Route: 042
     Dates: start: 201403
  5. ZANTAC [Concomitant]
     Active Substance: RANITIDINE HYDROCHLORIDE

REACTIONS (8)
  - Tremor [Unknown]
  - Drug administration error [Unknown]
  - Monoplegia [Unknown]
  - Malaise [Unknown]
  - Rash [Unknown]
  - Gait disturbance [Unknown]
  - Blood pressure increased [Unknown]
  - Cerebrovascular accident [Unknown]
